FAERS Safety Report 8150781-9 (Version None)
Quarter: 2012Q1

REPORT INFORMATION
  Report Type: 
  Country: None (occurrence: None)
  Receive Date: 20120220
  Receipt Date: 20120213
  Transmission Date: 20120608
  Serious: Yes (Other)
  Sender: FDA-Public Use
  Company Number: FR-ABBOTT-11P-056-0865864-00

PATIENT
  Age: 40 Year
  Sex: Male

DRUGS (2)
  1. RISPERDAL [Concomitant]
     Indication: PRODUCT USED FOR UNKNOWN INDICATION
     Dates: start: 20110701, end: 20111001
  2. DEPAKOTE [Suspect]
     Indication: SCHIZOPHRENIA
     Dosage: 1500 MG DAILY
     Route: 048
     Dates: start: 20030101, end: 20111013

REACTIONS (4)
  - CONFUSIONAL STATE [None]
  - DRUG LEVEL DECREASED [None]
  - DISORIENTATION [None]
  - ENCEPHALOPATHY [None]
